FAERS Safety Report 21509295 (Version 1)
Quarter: 2022Q4

REPORT INFORMATION
  Report Type: Spontaneous
  Country: US (occurrence: None)
  Receive Date: 20221026
  Receipt Date: 20221026
  Transmission Date: 20230113
  Serious: No
  Sender: FDA-Public Use
  Company Number: US-NESTLEHEALTHSCIENCE-2021000101

PATIENT
  Age: 74 Year
  Sex: Female
  Weight: 51 kg

DRUGS (2)
  1. ZENPEP [Suspect]
     Active Substance: PANCRELIPASE AMYLASE\PANCRELIPASE LIPASE\PANCRELIPASE PROTEASE
     Indication: Pancreatic failure
     Dosage: STARTED 25,000 UNITS APPROX 6 MONTHS AGO
  2. ZENPEP [Suspect]
     Active Substance: PANCRELIPASE AMYLASE\PANCRELIPASE LIPASE\PANCRELIPASE PROTEASE
     Indication: Pancreatic failure
     Dosage: LOWERED DOSE TO 3000 THEN INCREASED TO 6000

REACTIONS (2)
  - Malaise [Recovered/Resolved]
  - Abdominal pain [Recovered/Resolved]
